FAERS Safety Report 16890949 (Version 2)
Quarter: 2019Q4

REPORT INFORMATION
  Report Type: Spontaneous
  Country: JP (occurrence: JP)
  Receive Date: 20191007
  Receipt Date: 20191016
  Transmission Date: 20200122
  Serious: Yes (Other)
  Sender: FDA-Public Use
  Company Number: JP-SA-2019SA276374

PATIENT
  Age: 95 Year
  Sex: Female
  Weight: 40 kg

DRUGS (8)
  1. MYSLEE [Suspect]
     Active Substance: ZOLPIDEM TARTRATE
     Dosage: 7.5 MG, QD
     Route: 048
  2. MYSLEE [Suspect]
     Active Substance: ZOLPIDEM TARTRATE
     Dosage: 12.5 MG, (7.5 MG, AND THEN 5 MG)
     Route: 048
  3. MYSLEE [Suspect]
     Active Substance: ZOLPIDEM TARTRATE
     Dosage: UNK UNK, UNK
     Route: 048
  4. MYSLEE [Suspect]
     Active Substance: ZOLPIDEM TARTRATE
     Indication: INSOMNIA
     Dosage: 10 MG, QD
     Route: 048
  5. RHYTHMY [Concomitant]
     Active Substance: RILMAZAFONE HYDROCHLORIDE
  6. MYSLEE [Suspect]
     Active Substance: ZOLPIDEM TARTRATE
     Dosage: 10 MG, QD
     Route: 048
  7. MYSLEE [Suspect]
     Active Substance: ZOLPIDEM TARTRATE
     Dosage: 5 MG, QD
     Route: 048
  8. SUVOREXANT. [Concomitant]
     Active Substance: SUVOREXANT

REACTIONS (4)
  - Prescribed overdose [Unknown]
  - Akinesia [Recovered/Resolved]
  - Tremor [Recovered/Resolved]
  - Parkinsonian gait [Unknown]
